FAERS Safety Report 11923955 (Version 8)
Quarter: 2017Q4

REPORT INFORMATION
  Report Type: Spontaneous
  Country: BR (occurrence: BR)
  Receive Date: 20160118
  Receipt Date: 20171108
  Transmission Date: 20180320
  Serious: Yes (Other)
  Sender: FDA-Public Use
  Company Number: BR-JNJFOC-20160111854

PATIENT
  Age: 62 Year
  Sex: Female
  Weight: 72 kg

DRUGS (9)
  1. SIMPONI [Suspect]
     Active Substance: GOLIMUMAB
     Indication: RHEUMATOID ARTHRITIS
     Route: 058
     Dates: start: 2017
  2. CORTISONE [Concomitant]
     Active Substance: CORTISONE\HYDROCORTISONE
     Route: 065
  3. CONCOR [Concomitant]
     Active Substance: BISOPROLOL FUMARATE
     Route: 065
  4. NITRENDIPINE [Concomitant]
     Active Substance: NITRENDIPINE
     Route: 065
  5. SIMPONI [Suspect]
     Active Substance: GOLIMUMAB
     Indication: RHEUMATOID ARTHRITIS
     Dosage: STARTED TREATMENT MORE OR LESS ON 08-MAR-2014
     Route: 058
     Dates: start: 201403
  6. METHOTREXATE. [Concomitant]
     Active Substance: METHOTREXATE
     Route: 065
  7. SIMPONI [Suspect]
     Active Substance: GOLIMUMAB
     Indication: RHEUMATOID ARTHRITIS
     Route: 058
     Dates: start: 201709
  8. SIMPONI [Suspect]
     Active Substance: GOLIMUMAB
     Indication: RHEUMATOID ARTHRITIS
     Route: 058
     Dates: start: 20140117, end: 201512
  9. INDAPAMIDE. [Concomitant]
     Active Substance: INDAPAMIDE
     Route: 065

REACTIONS (9)
  - Device malfunction [Unknown]
  - Rhinitis [Unknown]
  - Sinusitis [Unknown]
  - Influenza [Unknown]
  - Decreased immune responsiveness [Not Recovered/Not Resolved]
  - Urinary tract infection [Unknown]
  - Labyrinthitis [Unknown]
  - Product availability issue [Unknown]
  - Pyrexia [Unknown]

NARRATIVE: CASE EVENT DATE: 2015
